FAERS Safety Report 23682942 (Version 7)
Quarter: 2024Q4

REPORT INFORMATION
  Report Type: Report from Study
  Country: GB (occurrence: GB)
  Receive Date: 20240328
  Receipt Date: 20241217
  Transmission Date: 20250114
  Serious: Yes (Hospitalization, Other)
  Sender: IPSEN BIOPHARMACEUTICALS, INC.
  Company Number: GB-IPSEN Group, Research and Development-2024-03780

PATIENT
  Sex: Female

DRUGS (3)
  1. LANREOTIDE ACETATE [Suspect]
     Active Substance: LANREOTIDE ACETATE
     Indication: Neuroendocrine tumour
     Dosage: DEEP SUBCUTANEOUS
     Route: 058
     Dates: start: 20240213
  2. LANREOTIDE ACETATE [Suspect]
     Active Substance: LANREOTIDE ACETATE
     Dosage: LANREOTIDE IPSEN, DEEP SUBCUTANEOUS, 120MG/0.5ML
     Route: 058
  3. BISOPROLOL [Concomitant]
     Active Substance: BISOPROLOL
     Dosage: REDUCED TO 1.25MG

REACTIONS (16)
  - Bradycardia [Unknown]
  - Dyspnoea [Not Recovered/Not Resolved]
  - Dizziness [Not Recovered/Not Resolved]
  - Cardiac failure [Unknown]
  - Dyspnoea exertional [Unknown]
  - Fear [Unknown]
  - Palpitations [Not Recovered/Not Resolved]
  - Anaemia [Unknown]
  - Feeling abnormal [Recovering/Resolving]
  - Flushing [Unknown]
  - Tremor [Unknown]
  - Crying [Unknown]
  - Blood pressure decreased [Unknown]
  - Cardiac disorder [Unknown]
  - Abdominal discomfort [Unknown]
  - Off label use [Unknown]
